FAERS Safety Report 4832671-X (Version None)
Quarter: 2005Q4

REPORT INFORMATION
  Report Type: 
  Country: None (occurrence: None)
  Receive Date: 20051121
  Receipt Date: 20050914
  Transmission Date: 20060501
  Serious: Yes (Life-Threatening, Hospitalization)
  Sender: FDA-Public Use
  Company Number: 2005SE05230

PATIENT
  Age: 23004 Day
  Sex: Male

DRUGS (14)
  1. BELOC ZOK [Suspect]
     Indication: HYPERTENSION
     Dosage: TOTAL DAILY DOSE: 95 MG ORAL
     Route: 048
  2. ROSUVASTATIN CODE NOT BROKEN [Suspect]
     Indication: CARDIAC FAILURE CHRONIC
     Route: 048
     Dates: start: 20040308, end: 20050606
  3. ISOSORBIDE MONONITRATE [Concomitant]
     Indication: CORONARY ARTERY DISEASE
     Dosage: TOTAL DAILY DOSE: 60 MG ORAL
     Route: 048
  4. CALCIUMCARBONAT [Concomitant]
     Indication: OSTEOPOROSIS
     Dosage: TOTAL DAILY DOSE: 1500.3 MG ORAL
     Route: 048
  5. RAMIPRIL [Concomitant]
     Indication: CARDIAC FAILURE
     Dosage: TOTAL DAILY DOSE: 10 MG ORAL
     Route: 048
  6. MAGNESIUM [Concomitant]
     Indication: HYPOMAGNESAEMIA
     Dosage: TOTAL DAILY DOSE: 1.65 MMOL ORAL
     Route: 048
  7. MOLSIDOMIN [Concomitant]
     Indication: CORONARY ARTERY DISEASE
     Dosage: TOTAL DAILY DOSE: 8 MG ORAL
     Route: 048
  8. ACETYLSALICYLACID [Concomitant]
     Indication: CORONARY ARTERY DISEASE
     Dosage: TOTAL DAILY DOSE: 100 MG ORAL
     Route: 048
  9. INSULIN HUMAN [Concomitant]
     Indication: DIABETES MELLITUS
     Route: 058
  10. INSULINLISPRO [Concomitant]
     Indication: DIABETES MELLITUS
     Route: 058
  11. ALDACTONE [Concomitant]
     Indication: CARDIAC FAILURE
     Dosage: TOTAL DAILY DOSE: 50 MG ORAL
     Route: 048
  12. MARCUMAR [Concomitant]
     Indication: ATRIAL FIBRILLATION
     Route: 048
  13. TOREM [Concomitant]
     Indication: CARDIAC FAILURE
     Dosage: TOTAL DAILY DOSE: 40 MG ORAL
     Route: 048
     Dates: start: 20041004
  14. CORANGIN NITRO [Concomitant]
     Indication: CORONARY ARTERY DISEASE
     Route: 060

REACTIONS (2)
  - ATRIOVENTRICULAR BLOCK SECOND DEGREE [None]
  - TRIFASCICULAR BLOCK [None]
